FAERS Safety Report 6103793-0 (Version None)
Quarter: 2009Q1

REPORT INFORMATION
  Report Type: 
  Country: None (occurrence: None)
  Receive Date: 20090305
  Receipt Date: 20090226
  Transmission Date: 20090719
  Serious: Yes (Other)
  Sender: FDA-Public Use
  Company Number: ES-JNJFOC-20090300893

PATIENT
  Age: 17 Year
  Sex: Male

DRUGS (1)
  1. METILPHENIDATE [Suspect]
     Indication: ATTENTION DEFICIT/HYPERACTIVITY DISORDER
     Route: 048

REACTIONS (6)
  - DELIRIUM [None]
  - DEPERSONALISATION [None]
  - FLASHBACK [None]
  - PALPITATIONS [None]
  - PERSONALITY DISORDER [None]
  - VOMITING [None]
